FAERS Safety Report 9520988 (Version 1)
Quarter: 2013Q3

REPORT INFORMATION
  Report Type: Spontaneous
  Country: US (occurrence: US)
  Receive Date: 20130913
  Receipt Date: 20130913
  Transmission Date: 20140515
  Serious: No
  Sender: FDA-Public Use
  Company Number: US-PFIZER INC-2013261832

PATIENT
  Age: 71 Year
  Sex: Female
  Weight: 72.56 kg

DRUGS (1)
  1. ADVIL [Suspect]
     Indication: MUSCULOSKELETAL DISCOMFORT
     Dosage: 400 MG, AS NEEDED
     Dates: start: 20130904, end: 201309

REACTIONS (3)
  - Malaise [Unknown]
  - Abdominal discomfort [Unknown]
  - Nausea [Unknown]
